FAERS Safety Report 9062087 (Version 1)
Quarter: 2013Q1

REPORT INFORMATION
  Report Type: Spontaneous
  Country: US (occurrence: US)
  Receive Date: 20130127
  Receipt Date: 20130127
  Transmission Date: 20140127
  Serious: No
  Sender: FDA-Public Use
  Company Number: US-ALLERGAN-1213016US

PATIENT
  Age: 87 Year
  Sex: Female

DRUGS (6)
  1. PRED FORTE [Suspect]
     Indication: CATARACT OPERATION
     Dosage: 1 GTT OD, BID
     Route: 047
     Dates: start: 20120906
  2. PRED FORTE [Suspect]
     Dosage: 1 GTT OD, TID
     Route: 047
     Dates: start: 20120828, end: 20120906
  3. LUMIGAN [Concomitant]
     Indication: PRODUCT USED FOR UNKNOWN INDICATION
     Dosage: 1 GTT OU, QHS
     Route: 047
     Dates: start: 201009
  4. RESTASIS? [Concomitant]
     Indication: PRODUCT USED FOR UNKNOWN INDICATION
     Dosage: 1 GTT OU, BID
     Route: 047
     Dates: start: 201207
  5. DICLOFENAC [Concomitant]
     Indication: PRODUCT USED FOR UNKNOWN INDICATION
     Dosage: 1 GTT OD, TID
  6. FEXOFENADINE [Concomitant]
     Indication: HYPERSENSITIVITY

REACTIONS (2)
  - Fatigue [Not Recovered/Not Resolved]
  - Pruritus [Not Recovered/Not Resolved]
